FAERS Safety Report 6733805-2 (Version None)
Quarter: 2010Q2

REPORT INFORMATION
  Report Type: 
  Country: None (occurrence: None)
  Receive Date: 20100518
  Receipt Date: 20100510
  Transmission Date: 20101027
  Serious: Yes (Other)
  Sender: FDA-Public Use
  Company Number: 20108199

PATIENT
  Sex: Female

DRUGS (6)
  1. LIORESAL [Suspect]
     Indication: MUSCLE SPASTICITY
     Dosage: 476.2 - 232.8 MCG, DAILY, INTRATHECA
     Route: 037
  2. ALEVE (CAPLET) [Concomitant]
  3. FLUOXETINE [Concomitant]
  4. SINEQUAN [Concomitant]
  5. CLONAZEPAM [Concomitant]
  6. VYVANSE [Concomitant]

REACTIONS (8)
  - ASTHENIA [None]
  - DRUG INEFFECTIVE [None]
  - GAIT DISTURBANCE [None]
  - HEMIPARESIS [None]
  - MUSCLE SPASMS [None]
  - MUSCLE TIGHTNESS [None]
  - OVERDOSE [None]
  - PAIN [None]
